FAERS Safety Report 14479406 (Version 8)
Quarter: 2019Q2

REPORT INFORMATION
  Report Type: Spontaneous
  Country: DE (occurrence: DE)
  Receive Date: 20180202
  Receipt Date: 20190409
  Transmission Date: 20190711
  Serious: Yes (Other)
  Sender: FDA-Public Use
  Company Number: DE-AUROBINDO-AUR-APL-2018-004144

PATIENT

DRUGS (21)
  1. ENALAPRIL [Suspect]
     Active Substance: ENALAPRIL
     Indication: PRODUCT USED FOR UNKNOWN INDICATION
     Dosage: UNK
     Route: 048
  2. MADOPAR [Suspect]
     Active Substance: BENSERAZIDE HYDROCHLORIDE\LEVODOPA
     Indication: PRODUCT USED FOR UNKNOWN INDICATION
     Dosage: UNK
     Route: 048
  3. SIFROL [Concomitant]
     Active Substance: PRAMIPEXOLE
     Indication: PRODUCT USED FOR UNKNOWN INDICATION
     Dosage: UNK
     Route: 048
  4. DACEPTON [Suspect]
     Active Substance: APOMORPHINE HYDROCHLORIDE
     Indication: PARKINSON^S DISEASE
     Dosage: 89 MILLIGRAM, ONCE A DAY
     Route: 058
     Dates: start: 20170906
  5. DACEPTON [Suspect]
     Active Substance: APOMORPHINE HYDROCHLORIDE
     Dosage: 88 MILLIGRAM, ONCE A DAY, (FROM 7:00 TO 23:00)
     Route: 058
  6. DACEPTON [Suspect]
     Active Substance: APOMORPHINE HYDROCHLORIDE
     Dosage: 83 MILLIGRAM
     Route: 058
  7. ENALAPRIL [Suspect]
     Active Substance: ENALAPRIL
     Dosage: 5 MILLIGRAM
     Route: 048
  8. DACEPTON [Suspect]
     Active Substance: APOMORPHINE HYDROCHLORIDE
     Dosage: 88 MILLIGRAM, ONCE A DAY,  (FROM 7:00 TO 23:00)
     Route: 058
  9. ASPIRIN. [Concomitant]
     Active Substance: ASPIRIN
     Indication: PRODUCT USED FOR UNKNOWN INDICATION
     Dosage: 100 MILLIGRAM, ONCE A DAY
     Route: 048
  10. LEVOCOMP [Concomitant]
     Active Substance: CARBIDOPA\LEVODOPA
     Indication: PRODUCT USED FOR UNKNOWN INDICATION
     Dosage: 200 MILLIGRAM, DAILY
     Route: 048
  11. CARBIDOPA, LEVODOPA AND ENTACAPONE [Suspect]
     Active Substance: CARBIDOPA\ENTACAPONE\LEVODOPA
     Dosage: 500 MILLIGRAM, DAILY
     Route: 048
  12. DACEPTON [Suspect]
     Active Substance: APOMORPHINE HYDROCHLORIDE
     Dosage: 83 MILLIGRAM, ONCE A DAY
     Route: 058
  13. CIPRALEX [Concomitant]
     Active Substance: ESCITALOPRAM OXALATE
     Indication: PRODUCT USED FOR UNKNOWN INDICATION
     Dosage: 15 GRAM, DAILY
     Route: 048
  14. DACEPTON [Suspect]
     Active Substance: APOMORPHINE HYDROCHLORIDE
     Dosage: 88 MILLIGRAM
     Route: 058
  15. BISOPROLOL FILM-COATED TABLETS [Suspect]
     Active Substance: BISOPROLOL
     Indication: PRODUCT USED FOR UNKNOWN INDICATION
     Dosage: 2.5 MILLIGRAM, DAILY
     Route: 048
  16. HYDROCHLOROTHIAZIDE. [Suspect]
     Active Substance: HYDROCHLOROTHIAZIDE
     Indication: PRODUCT USED FOR UNKNOWN INDICATION
     Dosage: 12.5 MILLIGRAM
     Route: 048
  17. MADOPAR [Suspect]
     Active Substance: BENSERAZIDE HYDROCHLORIDE\LEVODOPA
     Dosage: 125 MILLIGRAM
     Route: 048
  18. STALEVO [Suspect]
     Active Substance: CARBIDOPA\ENTACAPONE\LEVODOPA
     Indication: PRODUCT USED FOR UNKNOWN INDICATION
     Dosage: 500 MILLIGRAM, DAILY
     Route: 048
  19. DACEPTON [Suspect]
     Active Substance: APOMORPHINE HYDROCHLORIDE
     Dosage: 83 MILLIGRAM, ONCE A DAY
     Route: 058
  20. SIFROL [Concomitant]
     Active Substance: PRAMIPEXOLE
     Dosage: UNK
     Route: 048
  21. MIRTAZAPINE. [Concomitant]
     Active Substance: MIRTAZAPINE
     Indication: PRODUCT USED FOR UNKNOWN INDICATION
     Dosage: UNK
     Route: 048

REACTIONS (7)
  - Fatigue [Unknown]
  - Nodule [Recovering/Resolving]
  - Sleep disorder [Not Recovered/Not Resolved]
  - Fall [Unknown]
  - Akinesia [Not Recovered/Not Resolved]
  - Hyperkinesia [Unknown]
  - Insomnia [Not Recovered/Not Resolved]

NARRATIVE: CASE EVENT DATE: 20170916
